FAERS Safety Report 7421987-9 (Version None)
Quarter: 2011Q2

REPORT INFORMATION
  Report Type: 
  Country: None (occurrence: None)
  Receive Date: 20110418
  Receipt Date: 20110405
  Transmission Date: 20111010
  Serious: Yes (Other)
  Sender: FDA-Public Use
  Company Number: US-ELI_LILLY_AND_COMPANY-US201007005807

PATIENT
  Sex: Female

DRUGS (6)
  1. FORTEO [Suspect]
     Indication: OSTEOPOROSIS
     Dosage: 20 UG, DAILY (1/D)
  2. LEVOTHYROXINE SODIUM [Concomitant]
     Dosage: 100 UG, 1/2 PILL FOR FIRST WEEK AND THEN A WHOLE PILL AFTER THAT
     Route: 065
  3. FORTEO [Suspect]
     Dosage: 20 UG, QD
     Route: 065
     Dates: start: 20110401
  4. LOTREL [Concomitant]
  5. LIPITOR [Concomitant]
     Dosage: 10 MG, UNK
  6. LEXAPRO [Concomitant]
     Dosage: 10 MG, UNK

REACTIONS (2)
  - LIP DISORDER [None]
  - METASTATIC SQUAMOUS CELL CARCINOMA [None]
